FAERS Safety Report 16765373 (Version 5)
Quarter: 2021Q3

REPORT INFORMATION
  Report Type: Spontaneous
  Country: US (occurrence: US)
  Receive Date: 20190903
  Receipt Date: 20210929
  Transmission Date: 20211014
  Serious: Yes (Other)
  Sender: FDA-Public Use
  Company Number: US-GILEAD-2019-0425747

PATIENT
  Age: 41 Year
  Sex: Male
  Weight: 99.79 kg

DRUGS (42)
  1. ATRIPLA [Suspect]
     Active Substance: EFAVIRENZ\EMTRICITABINE\TENOFOVIR DISOPROXIL FUMARATE
     Dosage: UNK
     Route: 048
     Dates: start: 20131022, end: 20140121
  2. ATRIPLA [Suspect]
     Active Substance: EFAVIRENZ\EMTRICITABINE\TENOFOVIR DISOPROXIL FUMARATE
     Dosage: UNK
     Route: 048
     Dates: start: 201011, end: 201309
  3. EPIVIR [Concomitant]
     Active Substance: LAMIVUDINE
  4. AVANDAMET [Concomitant]
     Active Substance: METFORMIN HYDROCHLORIDE\ROSIGLITAZONE MALEATE
  5. EXFORGE [Concomitant]
     Active Substance: AMLODIPINE BESYLATE\VALSARTAN
  6. ASTEPRO [Concomitant]
     Active Substance: AZELASTINE HYDROCHLORIDE
  7. ATRIPLA [Suspect]
     Active Substance: EFAVIRENZ\EMTRICITABINE\TENOFOVIR DISOPROXIL FUMARATE
     Dosage: UNK
     Route: 048
     Dates: start: 20100404, end: 20101022
  8. JULUCA [Concomitant]
     Active Substance: DOLUTEGRAVIR SODIUM\RILPIVIRINE HYDROCHLORIDE
  9. ACETAMINOPHEN AND CODEINE [Concomitant]
     Active Substance: ACETAMINOPHEN\CODEINE PHOSPHATE
  10. LEVAQUIN [Concomitant]
     Active Substance: LEVOFLOXACIN
  11. ATRIPLA [Suspect]
     Active Substance: EFAVIRENZ\EMTRICITABINE\TENOFOVIR DISOPROXIL FUMARATE
     Indication: HIV INFECTION
     Dosage: UNK
     Route: 048
     Dates: start: 2012, end: 2017
  12. SUSTIVA [Concomitant]
     Active Substance: EFAVIRENZ
  13. ACTOS [Concomitant]
     Active Substance: PIOGLITAZONE HYDROCHLORIDE
  14. PREDNISONE. [Concomitant]
     Active Substance: PREDNISONE
  15. DICYCLOMINE [Concomitant]
     Active Substance: DICYCLOMINE HYDROCHLORIDE
  16. DOXYCYCLINE HYCLATE. [Concomitant]
     Active Substance: DOXYCYCLINE HYCLATE
  17. COMPLERA [Suspect]
     Active Substance: EMTRICITABINE\RILPIVIRINE HYDROCHLORIDE\TENOFOVIR DISOPROXIL FUMARATE
     Indication: HIV INFECTION
     Dosage: UNK
     Route: 048
  18. PANTOPRAZOLE [Concomitant]
     Active Substance: PANTOPRAZOLE
  19. BYSTOLIC [Concomitant]
     Active Substance: NEBIVOLOL HYDROCHLORIDE
  20. CLINDAMYCIN. [Concomitant]
     Active Substance: CLINDAMYCIN
  21. TRUVADA [Suspect]
     Active Substance: EMTRICITABINE\TENOFOVIR DISOPROXIL FUMARATE
     Indication: HIV INFECTION
     Dosage: UNK
     Route: 048
  22. AZITHROMYCIN ANHYDROUS. [Concomitant]
     Active Substance: AZITHROMYCIN ANHYDROUS
  23. OZEMPIC [Concomitant]
     Active Substance: SEMAGLUTIDE
  24. TOBRAMYCIN. [Concomitant]
     Active Substance: TOBRAMYCIN
  25. EDURANT [Concomitant]
     Active Substance: RILPIVIRINE HYDROCHLORIDE
  26. TEKTURNA [Concomitant]
     Active Substance: ALISKIREN HEMIFUMARATE
  27. NASONEX [Concomitant]
     Active Substance: MOMETASONE FUROATE
  28. EPZICOM [Concomitant]
     Active Substance: ABACAVIR SULFATE\LAMIVUDINE
  29. EMTRIVA [Concomitant]
     Active Substance: EMTRICITABINE
  30. ACYCLOVIR [ACICLOVIR] [Concomitant]
     Active Substance: ACYCLOVIR
  31. GLIPIZIDE. [Concomitant]
     Active Substance: GLIPIZIDE
  32. FLUOCINONIDE. [Concomitant]
     Active Substance: FLUOCINONIDE
  33. CIPRODOX [CIPROFLOXACIN] [Concomitant]
  34. DIPHENOXYLATE [Concomitant]
     Active Substance: DIPHENOXYLATE
  35. CYCLOBENZAPRINE. [Concomitant]
     Active Substance: CYCLOBENZAPRINE
  36. ATRIPLA [Suspect]
     Active Substance: EFAVIRENZ\EMTRICITABINE\TENOFOVIR DISOPROXIL FUMARATE
     Dosage: UNK
     Route: 048
     Dates: start: 20131022, end: 20141214
  37. ATRIPLA [Suspect]
     Active Substance: EFAVIRENZ\EMTRICITABINE\TENOFOVIR DISOPROXIL FUMARATE
     Dosage: UNK
     Route: 048
     Dates: start: 20140121, end: 20141216
  38. TIVICAY [Concomitant]
     Active Substance: DOLUTEGRAVIR SODIUM
  39. METHYLPREDNISOLONE. [Concomitant]
     Active Substance: METHYLPREDNISOLONE
  40. DIAZEPAM. [Concomitant]
     Active Substance: DIAZEPAM
  41. TRESIBA [Concomitant]
     Active Substance: INSULIN DEGLUDEC
  42. FLUTICASONE. [Concomitant]
     Active Substance: FLUTICASONE

REACTIONS (11)
  - Anxiety [Unknown]
  - Pain [Unknown]
  - Acute kidney injury [Unknown]
  - Anhedonia [Unknown]
  - Economic problem [Unknown]
  - Chest pain [Unknown]
  - Chronic kidney disease [Not Recovered/Not Resolved]
  - Headache [Unknown]
  - End stage renal disease [Unknown]
  - Emotional distress [Unknown]
  - Loss of personal independence in daily activities [Unknown]

NARRATIVE: CASE EVENT DATE: 20150829
